FAERS Safety Report 9169717 (Version 1)
Quarter: 2013Q1

REPORT INFORMATION
  Report Type: Spontaneous
  Country: DE (occurrence: DE)
  Receive Date: 20130318
  Receipt Date: 20130318
  Transmission Date: 20140127
  Serious: Yes (Death, Life-Threatening, Hospitalization)
  Sender: FDA-Public Use
  Company Number: GXKR2013DE001181

PATIENT
  Age: 80 Year
  Sex: Male
  Weight: 67 kg

DRUGS (3)
  1. CEFUROXIME [Suspect]
     Indication: INTERVERTEBRAL DISCITIS
     Dosage: 2.5 G, TID
     Route: 042
     Dates: start: 20130207, end: 20130213
  2. TAZOBAC [Concomitant]
     Indication: SEPSIS
     Dosage: 4.5 MG, BID
     Route: 042
     Dates: start: 20130214, end: 20130219
  3. METRONIDAZOLE [Concomitant]
     Indication: SEPSIS
     Dosage: 0.5 G, TID
     Route: 042
     Dates: start: 20130215, end: 20130219

REACTIONS (4)
  - Pseudomembranous colitis [Fatal]
  - Multi-organ failure [Fatal]
  - Sepsis [Fatal]
  - Necrotising colitis [Fatal]
